FAERS Safety Report 11148942 (Version 1)
Quarter: 2015Q2

REPORT INFORMATION
  Report Type: Report from Study
  Country: SG (occurrence: SG)
  Receive Date: 20150529
  Receipt Date: 20150529
  Transmission Date: 20150821
  Serious: Yes (Hospitalization)
  Sender: FDA-Public Use
  Company Number: PHHY2014SG070063

PATIENT
  Age: 58 Year
  Sex: Female

DRUGS (1)
  1. GLIVEC [Suspect]
     Active Substance: IMATINIB MESYLATE
     Indication: CHRONIC MYELOID LEUKAEMIA
     Dosage: 400 MG, QD
     Route: 065
     Dates: start: 20020510

REACTIONS (11)
  - Atrophy of globe [Unknown]
  - Iris adhesions [Unknown]
  - Tendon injury [Not Recovered/Not Resolved]
  - Vision blurred [Unknown]
  - Hypotony of eye [Unknown]
  - Glaucoma [Recovering/Resolving]
  - Diabetes mellitus [Unknown]
  - Visual impairment [Unknown]
  - Malaise [Recovering/Resolving]
  - Ocular albinism [Unknown]
  - Flat anterior chamber of eye [Unknown]

NARRATIVE: CASE EVENT DATE: 2014
